FAERS Safety Report 21022221 (Version 2)
Quarter: 2022Q3

REPORT INFORMATION
  Report Type: Spontaneous
  Country: US (occurrence: US)
  Receive Date: 20220629
  Receipt Date: 20220707
  Transmission Date: 20221027
  Serious: No
  Sender: FDA-Public Use
  Company Number: US-AMGEN-USASP2022104660

PATIENT
  Age: 68 Year
  Sex: Female

DRUGS (1)
  1. PROLIA [Suspect]
     Active Substance: DENOSUMAB
     Indication: Product used for unknown indication
     Dosage: UNK
     Route: 065
     Dates: start: 202108

REACTIONS (5)
  - Photosensitivity reaction [Unknown]
  - Skin burning sensation [Not Recovered/Not Resolved]
  - Acne [Unknown]
  - Eye irritation [Unknown]
  - Angular cheilitis [Unknown]

NARRATIVE: CASE EVENT DATE: 20211201
